FAERS Safety Report 5470537-5 (Version None)
Quarter: 2007Q3

REPORT INFORMATION
  Report Type: 
  Country: None (occurrence: None)
  Receive Date: 20070927
  Receipt Date: 20070927
  Transmission Date: 20080115
  Serious: Yes (Hospitalization)
  Sender: FDA-Public Use
  Company Number: None

PATIENT
  Age: 37 Year
  Sex: Male
  Weight: 82.5547 kg

DRUGS (5)
  1. ENBREL [Suspect]
     Indication: RHEUMATOID ARTHRITIS
     Dosage: 50 MG ONCE WEEKLY SQ
     Route: 058
     Dates: start: 20030702, end: 20070710
  2. METHOTREXATE [Concomitant]
  3. DICLOFENAC SODIUM [Concomitant]
  4. FOLIC ACID [Concomitant]
  5. FISH OIL [Concomitant]

REACTIONS (1)
  - STAPHYLOCOCCAL INFECTION [None]
